FAERS Safety Report 10761273 (Version 1)
Quarter: 2015Q1

REPORT INFORMATION
  Report Type: Spontaneous
  Country: US (occurrence: US)
  Receive Date: 20150204
  Receipt Date: 20150204
  Transmission Date: 20150721
  Serious: Yes (Other)
  Sender: FDA-Public Use
  Company Number: US-009507513-1501USA011983

PATIENT
  Sex: Male

DRUGS (2)
  1. INTRON A [Suspect]
     Active Substance: INTERFERON ALFA-2B
  2. REBETOL [Suspect]
     Active Substance: RIBAVIRIN
     Route: 048

REACTIONS (3)
  - Hepatic cancer [Unknown]
  - Malaise [Unknown]
  - Hepatic cirrhosis [Unknown]
